FAERS Safety Report 8818729 (Version 3)
Quarter: 2015Q3

REPORT INFORMATION
  Report Type: Report from Study
  Country: US (occurrence: US)
  Receive Date: 20121001
  Receipt Date: 20150708
  Transmission Date: 20151125
  Serious: Yes (Death)
  Sender: FDA-Public Use
  Company Number: US-ROCHE-1104084

PATIENT
  Age: 52 Year
  Sex: Female

DRUGS (31)
  1. XELODA [Suspect]
     Active Substance: CAPECITABINE
     Indication: PRODUCT USED FOR UNKNOWN INDICATION
     Route: 065
     Dates: start: 200410, end: 200501
  2. XELODA [Suspect]
     Active Substance: CAPECITABINE
     Route: 065
  3. DECADRON [Concomitant]
     Active Substance: DEXAMETHASONE
     Route: 042
  4. ROBITUSSIN AC (UNITED STATES) [Concomitant]
     Route: 065
  5. INFED [Concomitant]
     Active Substance: IRON DEXTRAN
     Route: 065
  6. DOXYCYCLINE. [Concomitant]
     Active Substance: DOXYCYCLINE
  7. HERCEPTIN [Suspect]
     Active Substance: TRASTUZUMAB
     Route: 065
  8. SOLU-MEDROL [Concomitant]
     Active Substance: METHYLPREDNISOLONE SODIUM SUCCINATE
     Route: 065
  9. PROCRIT [Concomitant]
     Active Substance: ERYTHROPOIETIN
     Route: 065
  10. TAXOTERE [Concomitant]
     Active Substance: DOCETAXEL
     Route: 065
  11. CARBOPLATIN. [Concomitant]
     Active Substance: CARBOPLATIN
     Route: 065
  12. TAGAMET [Concomitant]
     Active Substance: CIMETIDINE
     Route: 065
  13. ANZEMET [Concomitant]
     Active Substance: DOLASETRON MESYLATE
     Route: 065
  14. HERCEPTIN [Suspect]
     Active Substance: TRASTUZUMAB
     Indication: BREAST CANCER FEMALE
     Route: 065
     Dates: start: 20010905
  15. TAXOL [Concomitant]
     Active Substance: PACLITAXEL
     Route: 065
  16. NEULASTA [Concomitant]
     Active Substance: PEGFILGRASTIM
     Route: 065
  17. TYLENOL [Concomitant]
     Active Substance: ACETAMINOPHEN
     Route: 048
  18. CARBOPLATIN. [Concomitant]
     Active Substance: CARBOPLATIN
     Route: 065
  19. NAVELBINE [Concomitant]
     Active Substance: VINORELBINE TARTRATE
     Route: 065
  20. LOVENOX [Concomitant]
     Active Substance: ENOXAPARIN SODIUM
     Route: 065
  21. BENADRYL [Concomitant]
     Active Substance: DIPHENHYDRAMINE HYDROCHLORIDE
     Route: 048
  22. PARAPLATIN [Concomitant]
     Active Substance: CARBOPLATIN
  23. HERCEPTIN [Suspect]
     Active Substance: TRASTUZUMAB
     Route: 065
  24. HERCEPTIN [Suspect]
     Active Substance: TRASTUZUMAB
     Route: 065
  25. DECADRON [Concomitant]
     Active Substance: DEXAMETHASONE
     Route: 042
  26. ARIMIDEX [Concomitant]
     Active Substance: ANASTROZOLE
     Route: 065
  27. HEPARIN [Concomitant]
     Active Substance: HEPARIN SODIUM
     Route: 065
  28. HERCEPTIN [Suspect]
     Active Substance: TRASTUZUMAB
     Route: 065
  29. GEMZAR [Concomitant]
     Active Substance: GEMCITABINE HYDROCHLORIDE
     Route: 065
  30. DOXIL [Concomitant]
     Active Substance: DOXORUBICIN HYDROCHLORIDE
     Route: 065
  31. AREDIA [Concomitant]
     Active Substance: PAMIDRONATE DISODIUM

REACTIONS (21)
  - Cough [Unknown]
  - Dyspnoea [Unknown]
  - Folliculitis [Unknown]
  - Weight increased [Unknown]
  - Anaemia [Recovering/Resolving]
  - Neutropenia [Unknown]
  - Fatigue [Unknown]
  - Pyrexia [Unknown]
  - Pulmonary fibrosis [Unknown]
  - Disease progression [Fatal]
  - Lymphadenopathy [Unknown]
  - Hiatus hernia [Unknown]
  - Maternal exposure during pregnancy [Unknown]
  - Thrombocytopenia [Unknown]
  - No therapeutic response [Unknown]
  - Intraductal proliferative breast lesion [Unknown]
  - Pleural effusion [Unknown]
  - Tricuspid valve incompetence [Unknown]
  - Palmar-plantar erythrodysaesthesia syndrome [Unknown]
  - Microcytosis [Unknown]
  - Tenderness [Unknown]

NARRATIVE: CASE EVENT DATE: 200309
